FAERS Safety Report 18707348 (Version 2)
Quarter: 2021Q1

REPORT INFORMATION
  Report Type: Report from Study
  Country: GB (occurrence: GB)
  Receive Date: 20210106
  Receipt Date: 20210209
  Transmission Date: 20210419
  Serious: Yes (Other)
  Sender: FDA-Public Use
  Company Number: GB-SAMSUNG BIOEPIS-SB-2021-00104

PATIENT
  Sex: Female

DRUGS (1)
  1. IMRALDI [Suspect]
     Active Substance: ADALIMUMAB
     Indication: PSORIATIC ARTHROPATHY
     Route: 058
     Dates: start: 20201110

REACTIONS (7)
  - COVID-19 [Unknown]
  - Fall [Unknown]
  - Therapeutic product effect incomplete [Unknown]
  - Rib fracture [Unknown]
  - Neurological symptom [Unknown]
  - Neuropathy peripheral [Unknown]
  - Herpes zoster [Unknown]
